FAERS Safety Report 7772347-2 (Version None)
Quarter: 2011Q3

REPORT INFORMATION
  Report Type: 
  Country: None (occurrence: None)
  Receive Date: 20110922
  Receipt Date: 20110509
  Transmission Date: 20111222
  Serious: Yes (Other)
  Sender: FDA-Public Use
  Company Number: US-ASTRAZENECA-2009UW13447

PATIENT
  Age: 410 Month
  Sex: Male
  Weight: 102.1 kg

DRUGS (10)
  1. ZYPREXA [Concomitant]
     Indication: BIPOLAR DISORDER
     Dates: start: 20010101
  2. SEROQUEL [Suspect]
     Indication: BIPOLAR DISORDER
     Route: 048
     Dates: start: 20011115
  3. SEROQUEL [Suspect]
     Dosage: 400 MG 3 AT HS
     Route: 048
     Dates: start: 20110509
  4. SINEQUAN [Concomitant]
     Dates: start: 19970101
  5. PAXIL [Concomitant]
     Dates: start: 20000101, end: 20010101
  6. HALDOL [Concomitant]
     Dates: start: 19950101
  7. LEXAPRO [Concomitant]
     Dates: start: 20030101, end: 20090101
  8. CYLERT [Concomitant]
  9. ABILIFY [Concomitant]
     Dates: start: 20090401, end: 20090501
  10. REMERON [Concomitant]
     Dates: start: 20010101, end: 20090101

REACTIONS (7)
  - DRUG INTOLERANCE [None]
  - HEADACHE [None]
  - PANCREATITIS [None]
  - BLOOD TRIGLYCERIDES INCREASED [None]
  - BLOOD CHOLESTEROL INCREASED [None]
  - TYPE 2 DIABETES MELLITUS [None]
  - HYPERLIPIDAEMIA [None]
